FAERS Safety Report 10983870 (Version 1)
Quarter: 2015Q2

REPORT INFORMATION
  Report Type: Spontaneous
  Country: US (occurrence: US)
  Receive Date: 20150403
  Receipt Date: 20150403
  Transmission Date: 20150821
  Serious: Yes (Life-Threatening, Hospitalization)
  Sender: FDA-Public Use
  Company Number: US-JNJFOC-20150315884

PATIENT
  Age: 4 Decade
  Sex: Male

DRUGS (15)
  1. PREZISTA [Suspect]
     Active Substance: DARUNAVIR ETHANOLATE
     Indication: HIV INFECTION
     Route: 048
  2. INVEGA SUSTENNA [Interacting]
     Active Substance: PALIPERIDONE PALMITATE
     Indication: PRODUCT USED FOR UNKNOWN INDICATION
     Route: 030
     Dates: start: 20150115, end: 201502
  3. NORVIR [Interacting]
     Active Substance: RITONAVIR
     Indication: HIV INFECTION
     Route: 065
     Dates: end: 201502
  4. RISPERDAL [Suspect]
     Active Substance: RISPERIDONE
     Indication: PRODUCT USED FOR UNKNOWN INDICATION
     Route: 048
  5. TRUVADA [Concomitant]
     Active Substance: EMTRICITABINE\TENOFOVIR DISOPROXIL FUMARATE
     Indication: HIV INFECTION
     Route: 065
     Dates: end: 201502
  6. MOTRIN [Concomitant]
     Active Substance: IBUPROFEN
     Route: 065
  7. PREZISTA [Suspect]
     Active Substance: DARUNAVIR ETHANOLATE
     Indication: HIV INFECTION
     Route: 048
     Dates: end: 201502
  8. LORATADINE. [Concomitant]
     Active Substance: LORATADINE
     Route: 065
  9. BENZTROPINE [Concomitant]
     Active Substance: BENZTROPINE
     Route: 065
  10. METHOCARBAMOL. [Concomitant]
     Active Substance: METHOCARBAMOL
     Route: 065
  11. BECLOMETHASONE [Concomitant]
     Active Substance: BECLOMETHASONE
     Route: 065
  12. INVEGA SUSTENNA [Interacting]
     Active Substance: PALIPERIDONE PALMITATE
     Indication: PRODUCT USED FOR UNKNOWN INDICATION
     Route: 030
     Dates: start: 20150107
  13. INVEGA SUSTENNA [Interacting]
     Active Substance: PALIPERIDONE PALMITATE
     Indication: PRODUCT USED FOR UNKNOWN INDICATION
     Route: 030
     Dates: start: 20150212, end: 201502
  14. NORVASC [Concomitant]
     Active Substance: AMLODIPINE BESYLATE
     Route: 065
  15. PRAVASTATIN [Concomitant]
     Active Substance: PRAVASTATIN\PRAVASTATIN SODIUM
     Route: 065

REACTIONS (5)
  - Adverse drug reaction [Unknown]
  - Endotracheal intubation [Recovered/Resolved]
  - Drug interaction [Unknown]
  - Bedridden [Unknown]
  - Antipsychotic drug level increased [Unknown]

NARRATIVE: CASE EVENT DATE: 20150222
